FAERS Safety Report 5063752-6 (Version None)
Quarter: 2006Q3

REPORT INFORMATION
  Report Type: 
  Country: None (occurrence: None)
  Receive Date: 20060724
  Receipt Date: 20060712
  Transmission Date: 20061208
  Serious: Yes (Hospitalization, Other)
  Sender: FDA-Public Use
  Company Number: 2006088144

PATIENT
  Age: 54 Year
  Sex: Male
  Weight: 117.9352 kg

DRUGS (1)
  1. CELEBREX [Suspect]
     Indication: DRUG USE FOR UNKNOWN INDICATION

REACTIONS (8)
  - ANOREXIA [None]
  - ANXIETY [None]
  - DEPRESSION [None]
  - DYSPEPSIA [None]
  - GASTRIC DISORDER [None]
  - HEADACHE [None]
  - HYPOAESTHESIA [None]
  - VISION BLURRED [None]
